FAERS Safety Report 8658992 (Version 3)
Quarter: 2012Q4

REPORT INFORMATION
  Report Type: Report from Study
  Country: FR (occurrence: FR)
  Receive Date: 20120710
  Receipt Date: 20120906
  Transmission Date: 20130627
  Serious: Yes (Hospitalization, Other)
  Sender: FDA-Public Use
  Company Number: FR-JNJFOC-20120700396

PATIENT
  Age: 51 Year
  Sex: Male
  Weight: 59 kg

DRUGS (6)
  1. TMC114 [Suspect]
     Indication: HIV INFECTION
     Route: 048
     Dates: start: 20110624
  2. RITONAVIR [Suspect]
     Indication: HIV INFECTION
     Route: 048
     Dates: start: 20110624
  3. TRUVADA [Suspect]
     Indication: HIV INFECTION
     Route: 048
     Dates: start: 20110624
  4. SEROXAT [Concomitant]
     Indication: DEPRESSION
     Dates: start: 2010
  5. UNKNOWN MEDICATION [Concomitant]
     Dates: start: 20110623
  6. RUBOZINC [Concomitant]
     Indication: ACNE
     Dates: start: 20110623

REACTIONS (1)
  - Acute coronary syndrome [Recovered/Resolved]
